FAERS Safety Report 5822155-4 (Version None)
Quarter: 2008Q3

REPORT INFORMATION
  Report Type: 
  Country: None (occurrence: None)
  Receive Date: 20080725
  Receipt Date: 20080716
  Transmission Date: 20090109
  Serious: Yes (Hospitalization)
  Sender: FDA-Public Use
  Company Number: GB-JNJFOC-20080704151

PATIENT
  Sex: Female
  Weight: 53.5 kg

DRUGS (4)
  1. REMICADE [Suspect]
     Route: 042
  2. REMICADE [Suspect]
     Route: 042
  3. REMICADE [Suspect]
     Indication: CROHN'S DISEASE
     Route: 042
  4. AZATHOPRINE [Concomitant]

REACTIONS (2)
  - MENINGITIS STAPHYLOCOCCAL [None]
  - SMALL INTESTINAL RESECTION [None]
